FAERS Safety Report 20975992 (Version 1)
Quarter: 2022Q2

REPORT INFORMATION
  Report Type: Report from Study
  Country: US (occurrence: US)
  Receive Date: 20220617
  Receipt Date: 20220617
  Transmission Date: 20220721
  Serious: Yes (Hospitalization)
  Sender: FDA-Public Use
  Company Number: US-NOVARTISPH-NVSC2022US139067

PATIENT
  Sex: Male

DRUGS (1)
  1. ENTRESTO [Suspect]
     Active Substance: SACUBITRIL\VALSARTAN
     Indication: Product used for unknown indication
     Dosage: 50 MG, BID (24.3 MG OF SACUBITRIL AND 25.7 MG OF VALSARTAN)
     Route: 048
     Dates: start: 2021

REACTIONS (2)
  - Cardiac disorder [Recovering/Resolving]
  - Ulcer [Recovering/Resolving]
